FAERS Safety Report 12296852 (Version 2)
Quarter: 2016Q3

REPORT INFORMATION
  Report Type: Spontaneous
  Country: US (occurrence: US)
  Receive Date: 20160422
  Receipt Date: 20160819
  Transmission Date: 20161109
  Serious: No
  Sender: FDA-Public Use
  Company Number: US-TAKEDA-2016MPI003126

PATIENT
  Sex: Male
  Weight: 98 kg

DRUGS (2)
  1. VELCADE [Suspect]
     Active Substance: BORTEZOMIB
     Indication: PLASMA CELL MYELOMA
     Dosage: UNK, 2/WEEK
     Route: 058
     Dates: start: 2015
  2. PANOBINOSTAT [Suspect]
     Active Substance: PANOBINOSTAT
     Indication: PLASMA CELL MYELOMA
     Dosage: UNK, 3/WEEK
     Route: 048
     Dates: start: 2015

REACTIONS (4)
  - Drug effect decreased [Unknown]
  - Insomnia [Not Recovered/Not Resolved]
  - Neuropathy peripheral [Recovering/Resolving]
  - Fatigue [Not Recovered/Not Resolved]
